FAERS Safety Report 17769259 (Version 1)
Quarter: 2020Q2

REPORT INFORMATION
  Report Type: Spontaneous
  Country: ES (occurrence: ES)
  Receive Date: 20200512
  Receipt Date: 20200512
  Transmission Date: 20200714
  Serious: Yes (Death)
  Sender: FDA-Public Use
  Company Number: ES-ABBVIE-20K-144-3399543-00

PATIENT
  Age: 82 Year
  Sex: Male

DRUGS (6)
  1. OMEPRAZOL [Concomitant]
     Active Substance: OMEPRAZOLE
     Indication: HIATUS HERNIA
     Route: 048
     Dates: start: 20200207, end: 20200321
  2. DOLQUINE [Interacting]
     Active Substance: HYDROXYCHLOROQUINE SULFATE
     Indication: COVID-19 PNEUMONIA
     Route: 048
     Dates: start: 20200320, end: 20200321
  3. KALETRA [Suspect]
     Active Substance: LOPINAVIR\RITONAVIR
     Indication: COVID-19 PNEUMONIA
     Route: 048
     Dates: start: 20200320, end: 20200321
  4. CEFTRIAXONA [Interacting]
     Active Substance: CEFTRIAXONE
     Indication: COVID-19 PNEUMONIA
     Route: 042
     Dates: start: 20200320, end: 20200321
  5. AZITROMICINA [Interacting]
     Active Substance: AZITHROMYCIN DIHYDRATE
     Indication: COVID-19 PNEUMONIA
     Route: 042
     Dates: start: 20200320, end: 20200321
  6. ENALAPRIL + HIDROCLOROTIAZIDA [Concomitant]
     Active Substance: ENALAPRIL MALEATE\HYDROCHLOROTHIAZIDE
     Indication: HYPERTENSION
     Route: 048
     Dates: start: 2017

REACTIONS (1)
  - Cardio-respiratory arrest [Fatal]

NARRATIVE: CASE EVENT DATE: 2020
